FAERS Safety Report 6528926-3 (Version None)
Quarter: 2009Q4

REPORT INFORMATION
  Report Type: 
  Country: None (occurrence: None)
  Receive Date: 20091224
  Receipt Date: 20091211
  Transmission Date: 20100525
  Serious: Yes (Other)
  Sender: FDA-Public Use
  Company Number: 2009AL007825

PATIENT
  Age: 80 Year
  Sex: Male

DRUGS (4)
  1. INDAPAMIDE [Suspect]
     Indication: CEREBROVASCULAR ACCIDENT
     Dosage: 2.5 MG; QAM;PO
     Route: 048
     Dates: start: 20080314, end: 20080331
  2. INDAPAMIDE [Suspect]
     Indication: PROPHYLAXIS
     Dosage: 2.5 MG; QAM;PO
     Route: 048
     Dates: start: 20080314, end: 20080331
  3. PERINDOPRIL ERBUMINE [Concomitant]
  4. GALANTAMINE HYDROBROMIDE [Concomitant]

REACTIONS (1)
  - ERYTHEMA MULTIFORME [None]
